FAERS Safety Report 24289680 (Version 2)
Quarter: 2024Q4

REPORT INFORMATION
  Report Type: Spontaneous
  Country: IE (occurrence: IE)
  Receive Date: 20240906
  Receipt Date: 20241206
  Transmission Date: 20250115
  Serious: Yes (Life-Threatening)
  Sender: ROCHE
  Company Number: IE-ROCHE-10000070946

PATIENT
  Age: 56 Year
  Sex: Female
  Weight: 84.6 kg

DRUGS (9)
  1. AVASTIN [Suspect]
     Active Substance: BEVACIZUMAB
     Indication: Ovarian cancer metastatic
     Route: 065
     Dates: start: 202402, end: 202407
  2. AVASTIN [Suspect]
     Active Substance: BEVACIZUMAB
     Route: 065
     Dates: start: 202209, end: 202301
  3. AVASTIN [Suspect]
     Active Substance: BEVACIZUMAB
     Route: 065
     Dates: start: 202105, end: 202108
  4. PACLITAXEL [Suspect]
     Active Substance: PACLITAXEL
     Indication: Ovarian cancer metastatic
     Dosage: FIRST LINE MAY 2021 - AUGUST 2021
     Route: 065
     Dates: start: 202105, end: 202108
  5. GEMCITABINE [Suspect]
     Active Substance: GEMCITABINE
     Indication: Ovarian cancer metastatic
     Dosage: SECOND LINE SEPTEMBER 2022 - JANUARY 2023
     Route: 065
     Dates: start: 202209, end: 202301
  6. DOXORUBICIN HYDROCHLORIDE [Suspect]
     Active Substance: DOXORUBICIN HYDROCHLORIDE
     Indication: Ovarian cancer metastatic
     Dosage: THIRD LINE FEBRUARY 2024 - JULY 2024
     Route: 065
     Dates: start: 202402, end: 202407
  7. CARBOPLATIN [Suspect]
     Active Substance: CARBOPLATIN
     Indication: Ovarian cancer metastatic
     Dosage: FIRST LINE MAY 2021 - AUGUST 2021?SECOND LINE SEPTEMBER 2022 - JANUARY 2023?THIRD LINE FEBRUARY 2024
     Route: 065
     Dates: start: 202105, end: 202108
  8. CARBOPLATIN [Suspect]
     Active Substance: CARBOPLATIN
     Dosage: FIRST LINE MAY 2021 - AUGUST 2021?SECOND LINE SEPTEMBER 2022 - JANUARY 2023?THIRD LINE FEBRUARY 2024
     Route: 065
     Dates: start: 202209, end: 202301
  9. CARBOPLATIN [Suspect]
     Active Substance: CARBOPLATIN
     Dosage: FIRST LINE MAY 2021 - AUGUST 2021?SECOND LINE SEPTEMBER 2022 - JANUARY 2023?THIRD LINE FEBRUARY 2024
     Route: 065
     Dates: start: 202402, end: 202407

REACTIONS (2)
  - Ovarian cancer metastatic [Unknown]
  - Drug ineffective [Unknown]
